FAERS Safety Report 19551483 (Version 1)
Quarter: 2021Q3

REPORT INFORMATION
  Report Type: Spontaneous
  Country: MY (occurrence: MY)
  Receive Date: 20210714
  Receipt Date: 20210714
  Transmission Date: 20211014
  Serious: Yes (Other)
  Sender: FDA-Public Use
  Company Number: MY-PFIZER INC-2021808176

PATIENT

DRUGS (1)
  1. ADRIBLASTIN [Suspect]
     Active Substance: DOXORUBICIN HYDROCHLORIDE
     Indication: DIFFUSE LARGE B-CELL LYMPHOMA

REACTIONS (5)
  - Neutropenia [Unknown]
  - Breast mass [Unknown]
  - Off label use [Unknown]
  - Neoplasm swelling [Unknown]
  - Septic shock [Unknown]
